FAERS Safety Report 5281094-0 (Version None)
Quarter: 2007Q1

REPORT INFORMATION
  Report Type: 
  Country: None (occurrence: None)
  Receive Date: 20061229
  Receipt Date: 20060612
  Transmission Date: 20070707
  Serious: Yes (Other)
  Sender: FDA-Public Use
  Company Number: 2006UW12495

PATIENT
  Age: 80 Year
  Sex: Female
  Weight: 57.606 kg

DRUGS (1)
  1. CRESTOR [Suspect]
     Indication: BLOOD CHOLESTEROL INCREASED
     Dosage: 5 MG DAILY PO
     Route: 048

REACTIONS (3)
  - FATIGUE [None]
  - HEART RATE INCREASED [None]
  - OEDEMA PERIPHERAL [None]
